FAERS Safety Report 6747570-6 (Version None)
Quarter: 2010Q2

REPORT INFORMATION
  Report Type: 
  Country: None (occurrence: None)
  Receive Date: 20100528
  Receipt Date: 20100519
  Transmission Date: 20101027
  Serious: Yes (Hospitalization, Other)
  Sender: FDA-Public Use
  Company Number: US-ABBOTT-10P-163-0646110-00

PATIENT
  Sex: Male
  Weight: 86.26 kg

DRUGS (18)
  1. NIASPAN [Suspect]
     Indication: BLOOD CHOLESTEROL INCREASED
  2. NIASPAN [Suspect]
     Indication: BLOOD TRIGLYCERIDES INCREASED
     Route: 048
  3. NIASPAN [Suspect]
     Route: 048
  4. FLORICET [Concomitant]
     Indication: DRUG USE FOR UNKNOWN INDICATION
     Route: 048
  5. ROBAXIN [Concomitant]
     Indication: MUSCLE RELAXANT THERAPY
  6. TOPROL-XL [Concomitant]
     Indication: HYPERTENSION
     Route: 048
  7. ASPIRIN [Concomitant]
     Indication: DRUG USE FOR UNKNOWN INDICATION
     Route: 048
  8. QUINAPRIL [Concomitant]
     Indication: HYPERTENSION
     Dosage: AT HOUR OF SLEEP
     Route: 048
  9. NEXIUM [Concomitant]
     Indication: DRUG USE FOR UNKNOWN INDICATION
     Route: 048
  10. THYROX [Concomitant]
     Indication: THYROID DISORDER
     Route: 048
  11. AMITRIPTYLINE [Concomitant]
     Indication: INSOMNIA
     Dosage: AT HOUR OF SLEEP
     Route: 048
  12. ACTOS [Concomitant]
     Indication: GLUCOSE TOLERANCE IMPAIRED
     Route: 048
  13. XANAX [Concomitant]
     Indication: DRUG USE FOR UNKNOWN INDICATION
     Route: 048
  14. ALBUTEROL [Concomitant]
     Indication: EMPHYSEMA
  15. LIPITOR [Concomitant]
     Indication: BLOOD CHOLESTEROL INCREASED
  16. LIPITOR [Concomitant]
     Indication: BLOOD TRIGLYCERIDES INCREASED
  17. LOPID [Concomitant]
     Indication: BLOOD CHOLESTEROL INCREASED
     Route: 048
  18. LOPID [Concomitant]
     Indication: BLOOD TRIGLYCERIDES INCREASED

REACTIONS (9)
  - BLOOD CHOLESTEROL INCREASED [None]
  - BLOOD PRESSURE INCREASED [None]
  - BLOOD TRIGLYCERIDES INCREASED [None]
  - CORONARY ARTERY OCCLUSION [None]
  - FLUSHING [None]
  - INAPPROPRIATE SCHEDULE OF DRUG ADMINISTRATION [None]
  - PRURITUS [None]
  - RASH PAPULAR [None]
  - SKIN ULCER [None]
